FAERS Safety Report 6852607-X (Version None)
Quarter: 2010Q3

REPORT INFORMATION
  Report Type: 
  Country: None (occurrence: None)
  Receive Date: 20100717
  Receipt Date: 20071115
  Transmission Date: 20110219
  Serious: No
  Sender: FDA-Public Use
  Company Number: US-PFIZER INC-2007098730

PATIENT
  Sex: Female
  Weight: 85 kg

DRUGS (5)
  1. CHANTIX [Suspect]
     Dates: start: 20071114
  2. PROZAC [Concomitant]
  3. ALPRAZOLAM [Concomitant]
  4. SUDAFED 12 HOUR [Concomitant]
     Dates: end: 20071101
  5. ALL OTHER THERAPEUTIC PRODUCTS [Concomitant]
     Dates: end: 20071101

REACTIONS (5)
  - DIARRHOEA [None]
  - FATIGUE [None]
  - FEELING ABNORMAL [None]
  - LETHARGY [None]
  - NAUSEA [None]
